FAERS Safety Report 16461068 (Version 5)
Quarter: 2020Q2

REPORT INFORMATION
  Report Type: Spontaneous
  Country: JP (occurrence: JP)
  Receive Date: 20190621
  Receipt Date: 20200416
  Transmission Date: 20200713
  Serious: Yes (Life-Threatening, Hospitalization, Other)
  Sender: FDA-Public Use
  Company Number: JP-009507513-1905JPN001168J

PATIENT
  Age: 71 Year
  Sex: Female

DRUGS (1)
  1. KEYTRUDA [Suspect]
     Active Substance: PEMBROLIZUMAB
     Indication: UTERINE CANCER
     Dosage: 200 MILLIGRAM, Q3W
     Route: 041
     Dates: start: 20190326

REACTIONS (8)
  - Immune-mediated hypothyroidism [Recovering/Resolving]
  - C-reactive protein increased [Unknown]
  - White blood cell count decreased [Not Recovered/Not Resolved]
  - Skin laceration [Unknown]
  - Pyrexia [Recovering/Resolving]
  - Rash [Unknown]
  - Neutrophil count decreased [Not Recovered/Not Resolved]
  - Sepsis [Recovering/Resolving]

NARRATIVE: CASE EVENT DATE: 2019
